FAERS Safety Report 6441131-4 (Version None)
Quarter: 2009Q4

REPORT INFORMATION
  Report Type: 
  Country: None (occurrence: None)
  Receive Date: 20091116
  Receipt Date: 20091008
  Transmission Date: 20100525
  Serious: No
  Sender: FDA-Public Use
  Company Number: US-BAYER-200937289NA

PATIENT
  Age: 44 Year
  Sex: Female

DRUGS (5)
  1. MAGNEVIST [Suspect]
     Indication: NUCLEAR MAGNETIC RESONANCE IMAGING BRAIN
     Dosage: TOTAL DAILY DOSE: 10 ML
     Dates: start: 20091108, end: 20091108
  2. ASCORBIC ACID [Concomitant]
  3. MULTI-VIT [Concomitant]
  4. LOVAZA [Concomitant]
  5. CALCIUM SUPP [Concomitant]

REACTIONS (2)
  - PRURITUS [None]
  - URTICARIA [None]
